FAERS Safety Report 5455027-8 (Version None)
Quarter: 2007Q3

REPORT INFORMATION
  Report Type: 
  Country: None (occurrence: None)
  Receive Date: 20070918
  Receipt Date: 20070913
  Transmission Date: 20080115
  Serious: Yes (Death)
  Sender: FDA-Public Use
  Company Number: PHMT2007CA01903

PATIENT
  Age: 70 Year
  Sex: Female

DRUGS (1)
  1. CLOZARIL [Suspect]
     Route: 048
     Dates: start: 19980421

REACTIONS (1)
  - CEREBROVASCULAR ACCIDENT [None]
